FAERS Safety Report 11181405 (Version 2)
Quarter: 2015Q3

REPORT INFORMATION
  Report Type: Spontaneous
  Country: IT (occurrence: IT)
  Receive Date: 20150611
  Receipt Date: 20150810
  Transmission Date: 20151125
  Serious: Yes (Hospitalization)
  Sender: FDA-Public Use
  Company Number: IT-HOSPIRA-2891738

PATIENT
  Age: 78 Year
  Sex: Male

DRUGS (20)
  1. ZALTRAP                            /06225401/ [Suspect]
     Active Substance: AFLIBERCEPT
     Indication: RECTAL CANCER
     Route: 042
     Dates: start: 20150504, end: 20150504
  2. FLUOROURACIL. [Suspect]
     Active Substance: FLUOROURACIL
  3. IRINOTECAN HYDROCHLORIDE. [Suspect]
     Active Substance: IRINOTECAN HYDROCHLORIDE
  4. LEDERFOLIN [Suspect]
     Active Substance: LEUCOVORIN CALCIUM
  5. ZALTRAP                            /06225401/ [Suspect]
     Active Substance: AFLIBERCEPT
  6. FLUOROURACIL. [Suspect]
     Active Substance: FLUOROURACIL
  7. LEDERFOLIN [Suspect]
     Active Substance: LEUCOVORIN CALCIUM
     Indication: RECTAL CANCER
     Route: 042
     Dates: start: 20150504, end: 20150504
  8. ZALTRAP                            /06225401/ [Suspect]
     Active Substance: AFLIBERCEPT
  9. FLUOROURACIL. [Suspect]
     Active Substance: FLUOROURACIL
  10. IRINOTECAN HYDROCHLORIDE. [Suspect]
     Active Substance: IRINOTECAN HYDROCHLORIDE
  11. ZALTRAP                            /06225401/ [Suspect]
     Active Substance: AFLIBERCEPT
  12. IRINOTECAN HYDROCHLORIDE. [Suspect]
     Active Substance: IRINOTECAN HYDROCHLORIDE
  13. LEDERFOLIN [Suspect]
     Active Substance: LEUCOVORIN CALCIUM
  14. IRINOTECAN HYDROCHLORIDE. [Suspect]
     Active Substance: IRINOTECAN HYDROCHLORIDE
  15. LEDERFOLIN [Suspect]
     Active Substance: LEUCOVORIN CALCIUM
  16. LEDERFOLIN [Suspect]
     Active Substance: LEUCOVORIN CALCIUM
  17. ZALTRAP                            /06225401/ [Suspect]
     Active Substance: AFLIBERCEPT
  18. FLUOROURACIL. [Suspect]
     Active Substance: FLUOROURACIL
     Indication: RECTAL CANCER
     Route: 042
     Dates: start: 20150504, end: 20150506
  19. FLUOROURACIL. [Suspect]
     Active Substance: FLUOROURACIL
  20. IRINOTECAN HYDROCHLORIDE. [Suspect]
     Active Substance: IRINOTECAN HYDROCHLORIDE
     Indication: RECTAL CANCER
     Route: 042
     Dates: start: 20150504, end: 20150504

REACTIONS (3)
  - Pulmonary embolism [Unknown]
  - Haemorrhoidal haemorrhage [Recovered/Resolved]
  - Neutropenia [Recovered/Resolved]

NARRATIVE: CASE EVENT DATE: 20150513
